FAERS Safety Report 12632436 (Version 2)
Quarter: 2016Q3

REPORT INFORMATION
  Report Type: Spontaneous
  Country: US (occurrence: US)
  Receive Date: 20160808
  Receipt Date: 20160808
  Transmission Date: 20161109
  Serious: No
  Sender: FDA-Public Use
  Company Number: US-BEH-2016062877

PATIENT
  Sex: Female
  Weight: 141 kg

DRUGS (21)
  1. EPIPEN [Concomitant]
     Active Substance: EPINEPHRINE
  2. DICYCLOMINE [Concomitant]
     Active Substance: DICYCLOMINE HYDROCHLORIDE
  3. ROBAXIN [Concomitant]
     Active Substance: METHOCARBAMOL
  4. ZOLOFT [Concomitant]
     Active Substance: SERTRALINE HYDROCHLORIDE
  5. HIZENTRA [Suspect]
     Active Substance: HUMAN IMMUNOGLOBULIN G
     Route: 058
  6. LIPITOR [Concomitant]
     Active Substance: ATORVASTATIN CALCIUM
  7. ACETAMINOPHEN. [Concomitant]
     Active Substance: ACETAMINOPHEN
  8. HIZENTRA [Suspect]
     Active Substance: HUMAN IMMUNOGLOBULIN G
     Indication: IMMUNODEFICIENCY COMMON VARIABLE
     Route: 058
  9. WELLBUTRIN [Concomitant]
     Active Substance: BUPROPION HYDROCHLORIDE
  10. LIDOCAINE. [Concomitant]
     Active Substance: LIDOCAINE
  11. ABILIFY [Concomitant]
     Active Substance: ARIPIPRAZOLE
  12. BACLOFEN. [Concomitant]
     Active Substance: BACLOFEN
  13. DIPHENHYDRAMINE. [Concomitant]
     Active Substance: DIPHENHYDRAMINE
  14. ONDANSETRON [Concomitant]
     Active Substance: ONDANSETRON
  15. OXYCODONE [Concomitant]
     Active Substance: OXYCODONE
  16. HIZENTRA [Suspect]
     Active Substance: HUMAN IMMUNOGLOBULIN G
     Route: 058
  17. ZYRTEC [Concomitant]
     Active Substance: CETIRIZINE HYDROCHLORIDE
  18. KLONOPIN [Concomitant]
     Active Substance: CLONAZEPAM
  19. MORPHINE SULFATE. [Concomitant]
     Active Substance: MORPHINE SULFATE
  20. GEMFIBROZIL. [Concomitant]
     Active Substance: GEMFIBROZIL
  21. WARFARIN [Concomitant]
     Active Substance: WARFARIN

REACTIONS (1)
  - Headache [Unknown]
